FAERS Safety Report 11358695 (Version 1)
Quarter: 2015Q3

REPORT INFORMATION
  Report Type: Spontaneous
  Country: DE (occurrence: None)
  Receive Date: 20150806
  Receipt Date: 20150806
  Transmission Date: 20151125
  Serious: Yes (Death)
  Sender: FDA-Public Use
  Company Number: 2015FE01201

PATIENT
  Age: 1 Day
  Sex: Male

DRUGS (3)
  1. PARTUSISTEN (FENOTEROL HYDROBROMIDE) [Concomitant]
  2. PROPESS (DINOPROSTONE) VAGINAL DELIVERY SYSTEM [Suspect]
     Active Substance: DINOPROSTONE
     Indication: PRODUCT USED FOR UNKNOWN INDICATION
     Dosage: 1 TIME DAILY
     Route: 064
     Dates: start: 20150102, end: 20150102
  3. MEPTID [Concomitant]
     Active Substance: MEPTAZINOL HYDROCHLORIDE

REACTIONS (2)
  - Neonatal asphyxia [None]
  - Maternal drugs affecting foetus [None]

NARRATIVE: CASE EVENT DATE: 20150102
